FAERS Safety Report 7204701-1 (Version None)
Quarter: 2010Q4

REPORT INFORMATION
  Report Type: 
  Country: None (occurrence: None)
  Receive Date: 20101230
  Receipt Date: 20101221
  Transmission Date: 20110411
  Serious: Yes (Death, Hospitalization)
  Sender: FDA-Public Use
  Company Number: CZ-JNJFOC-20101208057

PATIENT
  Sex: Female

DRUGS (13)
  1. GOLIMUMAB [Suspect]
     Indication: RHEUMATOID ARTHRITIS
     Route: 058
  2. METHOTREXATE [Concomitant]
  3. ACIDUM FOLICUM [Concomitant]
  4. MEDROL [Concomitant]
  5. ORTANOL [Concomitant]
  6. LOZAR [Concomitant]
  7. AMLODIPINE BESYLATE [Concomitant]
  8. LOKREN [Concomitant]
  9. HYPOTYLIN [Concomitant]
  10. MILURIT [Concomitant]
  11. VEROSPIRON [Concomitant]
  12. TENAXUM [Concomitant]
  13. SORBIFER [Concomitant]

REACTIONS (3)
  - CARDIOPULMONARY FAILURE [None]
  - DERMATITIS ALLERGIC [None]
  - RENAL FAILURE ACUTE [None]
